FAERS Safety Report 12750292 (Version 2)
Quarter: 2016Q3

REPORT INFORMATION
  Report Type: Spontaneous
  Country: CH (occurrence: CH)
  Receive Date: 20160916
  Receipt Date: 20160921
  Transmission Date: 20161109
  Serious: Yes (Hospitalization)
  Sender: FDA-Public Use
  Company Number: CH-PFIZER INC-2016431130

PATIENT
  Age: 45 Year
  Sex: Female

DRUGS (7)
  1. PURINETHOL [Interacting]
     Active Substance: MERCAPTOPURINE
     Indication: B-CELL LYMPHOMA STAGE IV
     Dosage: 100 MG, 1X/DAY
     Route: 048
     Dates: start: 201510, end: 201608
  2. METHOTREXATE SODIUM. [Suspect]
     Active Substance: METHOTREXATE SODIUM
     Indication: B-CELL LYMPHOMA STAGE IV
     Dosage: 25 MG, WEEKLY
     Route: 041
     Dates: start: 201510, end: 201608
  3. VINCRISTIN TEVA [Interacting]
     Active Substance: VINCRISTINE
     Indication: B-CELL LYMPHOMA STAGE IV
     Dosage: 2 MG (ON DAY 1), UNK
     Route: 041
     Dates: start: 201510, end: 201608
  4. VALACICLOVIR SANDOZ [Concomitant]
     Active Substance: VALACYCLOVIR HYDROCHLORIDE
     Dosage: 500 MG, 1X/DAY
     Route: 048
  5. BACTRIM [Interacting]
     Active Substance: SULFAMETHOXAZOLE\TRIMETHOPRIM
     Dosage: 1 DF, UNK (3 IN 1 W)
     Route: 048
     Dates: end: 201608
  6. PANTOZOL [Interacting]
     Active Substance: PANTOPRAZOLE SODIUM
     Dosage: 40 MG, 1X/DAY
     Route: 048
     Dates: end: 201608
  7. FLUCONAZOL SANDOZ [Concomitant]
     Active Substance: FLUCONAZOLE
     Dosage: 400 MG, WEEKLY
     Route: 048

REACTIONS (6)
  - Headache [Unknown]
  - Pancytopenia [Recovered/Resolved]
  - Bone marrow toxicity [Recovered/Resolved]
  - Vomiting [Unknown]
  - Drug interaction [Unknown]
  - Migraine [Unknown]

NARRATIVE: CASE EVENT DATE: 2016
